FAERS Safety Report 5261223-5 (Version None)
Quarter: 2007Q1

REPORT INFORMATION
  Report Type: 
  Country: None (occurrence: None)
  Receive Date: 20070309
  Receipt Date: 20070227
  Transmission Date: 20070707
  Serious: Yes (Death)
  Sender: FDA-Public Use
  Company Number: MY-PFIZER INC-2007015872

PATIENT
  Age: 59 Year
  Sex: Female

DRUGS (7)
  1. CELEBREX [Suspect]
     Indication: PAIN
     Dosage: DAILY DOSE:200MG
     Route: 048
  2. TRAMADOL HCL [Concomitant]
  3. AMLODIPINE [Concomitant]
  4. RANITIDINE [Concomitant]
  5. FUSIDATE SODIUM [Concomitant]
  6. CEFUROXIME [Concomitant]
  7. METFORMIN HCL [Concomitant]

REACTIONS (2)
  - MYOCARDIAL INFARCTION [None]
  - VENTRICULAR TACHYCARDIA [None]
